FAERS Safety Report 21480387 (Version 1)
Quarter: 2022Q4

REPORT INFORMATION
  Report Type: Spontaneous
  Country: US (occurrence: US)
  Receive Date: 20221019
  Receipt Date: 20221019
  Transmission Date: 20230113
  Serious: Yes (Hospitalization, Other)
  Sender: FDA-Public Use
  Company Number: US-INDIVIOR US-INDV-136330-2022

PATIENT
  Age: 44 Year
  Sex: Male

DRUGS (1)
  1. BUPRENORPHINE\NALOXONE [Suspect]
     Active Substance: BUPRENORPHINE\NALOXONE
     Indication: Product used for unknown indication
     Dosage: UNK (INJECT)
     Route: 065

REACTIONS (4)
  - Osteomyelitis bacterial [Unknown]
  - Costochondritis [Unknown]
  - Rib fracture [Unknown]
  - Intentional product use issue [Recovered/Resolved]
